FAERS Safety Report 9638585 (Version 1)
Quarter: 2013Q4

REPORT INFORMATION
  Report Type: Spontaneous
  Country: US (occurrence: None)
  Receive Date: 20131018
  Receipt Date: 20131018
  Transmission Date: 20140711
  Serious: Yes (Other)
  Sender: FDA-Public Use
  Company Number: 2013AP008921

PATIENT
  Age: 46 Year
  Sex: Male

DRUGS (8)
  1. RISPERIDONE [Suspect]
  2. BUPROPION HYDROCHLORIDE [Suspect]
  3. LITHIUM CARBONATE [Suspect]
  4. ARIPIPRAZOLE [Suspect]
  5. LORAZEPAM [Suspect]
  6. DANTROLENE [Concomitant]
  7. AMANTADINE [Concomitant]
  8. BROMOCRIPTINE [Concomitant]

REACTIONS (8)
  - Neuroleptic malignant syndrome [None]
  - Agitation [None]
  - Abnormal behaviour [None]
  - Mutism [None]
  - Depressive symptom [None]
  - No therapeutic response [None]
  - Catatonia [None]
  - Mood altered [None]
